FAERS Safety Report 18507728 (Version 1)
Quarter: 2020Q4

REPORT INFORMATION
  Report Type: Report from Study
  Country: US (occurrence: US)
  Receive Date: 20201116
  Receipt Date: 20201116
  Transmission Date: 20210114
  Serious: No
  Sender: FDA-Public Use
  Company Number: NVSC2020US303235

PATIENT
  Sex: Female

DRUGS (1)
  1. ENTRESTO [Suspect]
     Active Substance: SACUBITRIL\VALSARTAN
     Indication: CARDIAC FAILURE
     Dosage: 50 MG(24.26 MG), BID
     Route: 048

REACTIONS (4)
  - Cough [Unknown]
  - Pollakiuria [Unknown]
  - Mental disorder [Unknown]
  - Dyspnoea [Recovering/Resolving]
